FAERS Safety Report 15115236 (Version 1)
Quarter: 2018Q3

REPORT INFORMATION
  Report Type: Spontaneous
  Country: US (occurrence: US)
  Receive Date: 20180706
  Receipt Date: 20180706
  Transmission Date: 20181010
  Serious: No
  Sender: FDA-Public Use
  Company Number: US-ALLERGAN-1828064US

PATIENT

DRUGS (1)
  1. VRAYLAR [Suspect]
     Active Substance: CARIPRAZINE
     Indication: RASH
     Dosage: 1.0?1.5 MG
     Route: 065
     Dates: start: 201803

REACTIONS (3)
  - Heart rate increased [Unknown]
  - Off label use [Unknown]
  - Rash [Unknown]
